FAERS Safety Report 10911046 (Version 1)
Quarter: 2015Q1

REPORT INFORMATION
  Report Type: Spontaneous
  Country: CA (occurrence: CA)
  Receive Date: 20150312
  Receipt Date: 20150312
  Transmission Date: 20150721
  Serious: Yes (Other)
  Sender: FDA-Public Use
  Company Number: CA-GSKJP-KK201316635GSK1550188SC003

PATIENT
  Age: 63 Year
  Sex: Female
  Weight: 59 kg

DRUGS (4)
  1. BENLYSTA [Suspect]
     Active Substance: BELIMUMAB
     Dosage: 580 MG, Q4 WEEKS
  2. BENLYSTA [Suspect]
     Active Substance: BELIMUMAB
     Dosage: UNK
     Dates: start: 20150309
  3. BENLYSTA [Suspect]
     Active Substance: BELIMUMAB
     Indication: SYSTEMIC LUPUS ERYTHEMATOSUS
     Dosage: 0, 2, 4 WEEKS THAN EVERY 4 WEEKS
     Route: 042
     Dates: start: 20120703
  4. BENLYSTA [Suspect]
     Active Substance: BELIMUMAB
     Dosage: 580 MG, Q4 WEEKS

REACTIONS (10)
  - Rash [Not Recovered/Not Resolved]
  - Urticaria [Recovered/Resolved]
  - Carpal tunnel syndrome [Unknown]
  - Infection [Unknown]
  - Pyrexia [Unknown]
  - Cutaneous lupus erythematosus [Not Recovered/Not Resolved]
  - Pulmonary mass [Not Recovered/Not Resolved]
  - Drug ineffective [Unknown]
  - Malaise [Unknown]
  - Pruritus [Unknown]

NARRATIVE: CASE EVENT DATE: 20120703
